FAERS Safety Report 7168206-9 (Version None)
Quarter: 2010Q4

REPORT INFORMATION
  Report Type: 
  Country: None (occurrence: None)
  Receive Date: 20101216
  Receipt Date: 20101208
  Transmission Date: 20110411
  Serious: Yes (Other)
  Sender: FDA-Public Use
  Company Number: BR-PFIZER INC-2010167709

PATIENT
  Age: 53 Year
  Sex: Male

DRUGS (9)
  1. ALPRAZOLAM [Suspect]
     Indication: PANIC DISORDER
     Dosage: IT VARIES FROM 3.5 TO 4.0MG/DAY
     Route: 048
     Dates: start: 19850101
  2. ALPRAZOLAM [Suspect]
  3. ASPIRIN [Suspect]
  4. LEXAPRO [Concomitant]
     Indication: ANTIDEPRESSANT THERAPY
     Dosage: 5 MG, 1X/DAY
     Dates: start: 20000101
  5. DORFLEX [Concomitant]
     Dosage: 1 TABLET/DAY
     Dates: start: 19900101
  6. CENTRUM [Concomitant]
     Dosage: UNK
     Dates: start: 19900101
  7. HYGROTON [Concomitant]
     Indication: BLOOD PRESSURE INCREASED
     Dosage: UNK
     Dates: start: 19800101
  8. PROPRANOLOL [Concomitant]
     Indication: BLOOD PRESSURE INCREASED
     Dosage: UNK
     Dates: start: 19800101
  9. MODURETIC 5-50 [Concomitant]
     Indication: BLOOD PRESSURE INCREASED
     Dosage: UNK
     Dates: start: 19800101

REACTIONS (12)
  - AGITATION [None]
  - DISTURBANCE IN SOCIAL BEHAVIOUR [None]
  - DRUG DEPENDENCE [None]
  - EYE OEDEMA [None]
  - HEADACHE [None]
  - HYPERACUSIS [None]
  - HYPERSENSITIVITY [None]
  - MYALGIA [None]
  - NERVOUSNESS [None]
  - PANIC DISORDER [None]
  - STRESS [None]
  - VISION BLURRED [None]
